FAERS Safety Report 4980177-X (Version None)
Quarter: 2006Q2

REPORT INFORMATION
  Report Type: 
  Country: None (occurrence: None)
  Receive Date: 20060424
  Receipt Date: 20060411
  Transmission Date: 20061013
  Serious: Yes (Hospitalization)
  Sender: FDA-Public Use
  Company Number: PHEH2006US04784

PATIENT
  Age: 35 Year
  Sex: Male

DRUGS (1)
  1. LAMISIL [Suspect]
     Indication: NAIL TINEA
     Dosage: 250 MG, QD
     Route: 048
     Dates: start: 20060301, end: 20060301

REACTIONS (8)
  - JOINT SWELLING [None]
  - NIGHT SWEATS [None]
  - PHARYNGOLARYNGEAL PAIN [None]
  - POLYARTHRITIS [None]
  - PYREXIA [None]
  - RASH [None]
  - SERUM SICKNESS [None]
  - URTICARIA [None]
